FAERS Safety Report 23981198 (Version 1)
Quarter: 2024Q2

REPORT INFORMATION
  Report Type: Report from Study
  Country: CA (occurrence: CA)
  Receive Date: 20240617
  Receipt Date: 20240617
  Transmission Date: 20240716
  Serious: Yes (Other)
  Sender: FDA-Public Use
  Company Number: None

PATIENT
  Age: 59 Year
  Sex: Female

DRUGS (15)
  1. METHOTREXATE [Suspect]
     Active Substance: METHOTREXATE
     Indication: Arthralgia
     Dosage: 1 EVERY 1 DAYS
     Route: 065
  2. CANDESARTAN [Concomitant]
     Active Substance: CANDESARTAN
  3. CELEBREX [Concomitant]
     Active Substance: CELECOXIB
  4. CHOLESTYRAMINE [Concomitant]
     Active Substance: CHOLESTYRAMINE
  5. DIMETHYL SULFOXIDE [Concomitant]
     Active Substance: DIMETHYL SULFOXIDE
  6. HYDROCHLOROTHIAZIDE [Concomitant]
     Active Substance: HYDROCHLOROTHIAZIDE
  7. IMODIUM [Concomitant]
     Active Substance: LOPERAMIDE HYDROCHLORIDE
  8. LOSEC [Concomitant]
     Active Substance: OMEPRAZOLE
  9. MESALAMINE [Concomitant]
     Active Substance: MESALAMINE
  10. MESALAMINE [Concomitant]
     Active Substance: MESALAMINE
  11. METHIMAZOLE [Concomitant]
     Active Substance: METHIMAZOLE
  12. OMEPRAZOLE [Concomitant]
     Active Substance: DONEPEZIL HYDROCHLORIDE\OMEPRAZOLE\OMEPRAZOLE MAGNESIUM
  13. PARA-AMINOSALICYLIC ACID [Concomitant]
     Active Substance: AMINOSALICYLIC ACID
  14. PREDNISONE [Concomitant]
     Active Substance: PREDNISONE
  15. METHOTREXATE [Suspect]
     Active Substance: METHOTREXATE
     Indication: Arthralgia
     Dosage: 1 EVERY 1 WEEKS
     Route: 065

REACTIONS (12)
  - Abdominal pain lower [Unknown]
  - Abdominal pain upper [Unknown]
  - Anal fissure [Unknown]
  - Arthralgia [Unknown]
  - Bronchiolitis [Unknown]
  - Crohn^s disease [Unknown]
  - Hepatic enzyme increased [Unknown]
  - Irritable bowel syndrome [Unknown]
  - Muscle disorder [Unknown]
  - Nausea [Unknown]
  - Off label use [Unknown]
  - Therapeutic reaction time decreased [Unknown]
